FAERS Safety Report 5237694-7 (Version None)
Quarter: 2007Q1

REPORT INFORMATION
  Report Type: 
  Country: None (occurrence: None)
  Receive Date: 20070214
  Receipt Date: 20070202
  Transmission Date: 20070707
  Serious: Yes (Hospitalization)
  Sender: FDA-Public Use
  Company Number: PHEH2007US01590

PATIENT
  Age: 63 Year
  Sex: Female

DRUGS (8)
  1. DIOVAN [Suspect]
     Indication: HYPERTENSION
     Dosage: UNK, UNK
     Route: 048
     Dates: start: 20050101, end: 20060701
  2. BUTALBITAL [Concomitant]
     Dosage: UNK, UNK
  3. LISINOPRIL [Concomitant]
     Dosage: UNK, UNK
  4. PLAVIX [Concomitant]
     Dosage: UNK, UNK
  5. ZETIA [Concomitant]
     Dosage: UNK, UNK
  6. METOPROLOL TARTRATE [Concomitant]
     Dosage: UNK, UNK
  7. ASPIRIN [Concomitant]
     Dosage: UNK, UNK
  8. PRAVACHOL [Concomitant]
     Dosage: UNK, UNK

REACTIONS (2)
  - CHEST PAIN [None]
  - MYOCARDIAL INFARCTION [None]
